FAERS Safety Report 10028428 (Version 1)
Quarter: 2014Q1

REPORT INFORMATION
  Report Type: Spontaneous
  Country: US (occurrence: None)
  Receive Date: 20140307
  Receipt Date: 20140307
  Transmission Date: 20141002
  Serious: Yes (Other)
  Sender: FDA-Public Use
  Company Number: ADR-2014-00259

PATIENT
  Age: 40 Year
  Sex: Male

DRUGS (1)
  1. COMPOUNDED BACLOFEN [Suspect]
     Indication: MUSCLE SPASTICITY

REACTIONS (3)
  - Drug withdrawal syndrome [None]
  - Burning sensation [None]
  - Muscle spasms [None]
